FAERS Safety Report 8871551 (Version 2)
Quarter: 2013Q2

REPORT INFORMATION
  Report Type: Spontaneous
  Country: US (occurrence: None)
  Receive Date: 20120426
  Receipt Date: 20120703
  Transmission Date: 20140414
  Serious: Yes (Other)
  Sender: FDA-Public Use
  Company Number: PHEH2012US004677

PATIENT
  Age: 42 Year
  Sex: Female

DRUGS (4)
  1. GILENYA [Suspect]
     Route: 048
     Dates: start: 20110711, end: 20120208
  2. PRISTIQ [Concomitant]
  3. RITALIN (METHYLPHENIDATE HYDROCHLORIKDE) [Concomitant]
  4. VITAMIN D (ERGOCALIFEROL) [Concomitant]

REACTIONS (1)
  - Herpes zoster [None]
